FAERS Safety Report 4548311-3 (Version None)
Quarter: 2005Q1

REPORT INFORMATION
  Report Type: 
  Country: None (occurrence: None)
  Receive Date: 20050106
  Receipt Date: 20050106
  Transmission Date: 20050727
  Serious: Yes (Death)
  Sender: FDA-Public Use
  Company Number: None

PATIENT
  Age: 43 Year
  Sex: Female
  Weight: 104.3273 kg

DRUGS (12)
  1. MEPERIDINE 10MG/ML  ABBOTT LABS [Suspect]
     Indication: PAIN MANAGEMENT
     Dosage: PCA  CONT. + DEMAND INTRAVENOUS
     Route: 042
     Dates: start: 20040518, end: 20040519
  2. LEXAPRO [Suspect]
     Dosage: 30MG DAILY ORAL
     Route: 048
     Dates: start: 20040501, end: 20040518
  3. PREVACID [Concomitant]
  4. KLONOPIN [Concomitant]
  5. CORGARD [Concomitant]
  6. FERROUS SULFATE TAB [Concomitant]
  7. PEPCID [Concomitant]
  8. COLACE [Concomitant]
  9. KEFZOL [Concomitant]
  10. ZOFRAN [Concomitant]
  11. NARCAN [Concomitant]
  12. MORPHINE [Concomitant]

REACTIONS (1)
  - KNEE ARTHROPLASTY [None]
